FAERS Safety Report 18314937 (Version 2)
Quarter: 2020Q4

REPORT INFORMATION
  Report Type: Spontaneous
  Country: US (occurrence: US)
  Receive Date: 20200925
  Receipt Date: 20201016
  Transmission Date: 20210113
  Serious: Yes (Other)
  Sender: FDA-Public Use
  Company Number: US-009507513-2009USA007949

PATIENT
  Age: 69 Year

DRUGS (8)
  1. ZERBAXA [Suspect]
     Active Substance: CEFTOLOZANE SULFATE\TAZOBACTAM SODIUM
     Indication: PSEUDOMONAL BACTERAEMIA
  2. MEROPENEM. [Concomitant]
     Active Substance: MEROPENEM
     Indication: IMPLANT SITE INFECTION
  3. ZERBAXA [Suspect]
     Active Substance: CEFTOLOZANE SULFATE\TAZOBACTAM SODIUM
     Indication: IMPLANT SITE INFECTION
     Dosage: 4.5 G PER 500 ML, INFUSED OVER 24 HOURS
  4. ZERBAXA [Suspect]
     Active Substance: CEFTOLOZANE SULFATE\TAZOBACTAM SODIUM
     Indication: MEDICAL DEVICE SITE INFECTION
  5. MEROPENEM. [Concomitant]
     Active Substance: MEROPENEM
     Indication: PSEUDOMONAL BACTERAEMIA
     Dosage: 6 GRAM, CONTINUOUS INFUSION (CI) EVERY 24 HOURS FOR 10 DAYS
     Route: 042
  6. AMOXICILLIN. [Concomitant]
     Active Substance: AMOXICILLIN
     Indication: PSEUDOMONAL BACTERAEMIA
     Dosage: 500 MILLIGRAM, TID
     Route: 048
  7. AMOXICILLIN. [Concomitant]
     Active Substance: AMOXICILLIN
     Indication: MEDICAL DEVICE SITE INFECTION
  8. AMOXICILLIN. [Concomitant]
     Active Substance: AMOXICILLIN
     Indication: IMPLANT SITE INFECTION

REACTIONS (2)
  - Off label use [Unknown]
  - Pathogen resistance [Unknown]
